FAERS Safety Report 15122977 (Version 1)
Quarter: 2018Q3

REPORT INFORMATION
  Report Type: Report from Study
  Country: US (occurrence: US)
  Receive Date: 20180709
  Receipt Date: 20180709
  Transmission Date: 20181010
  Serious: Yes (Hospitalization)
  Sender: FDA-Public Use
  Company Number: US-ACTELION-A-NJ2018-174159

PATIENT
  Age: 76 Year
  Sex: Female
  Weight: 57.6 kg

DRUGS (4)
  1. VENTAVIS [Suspect]
     Active Substance: ILOPROST
     Indication: PULMONARY HYPERTENSION
     Dosage: 9 DF, QD
     Route: 055
  2. TRACLEER [Concomitant]
     Active Substance: BOSENTAN
     Indication: PULMONARY ARTERIAL HYPERTENSION
  3. VENTAVIS [Suspect]
     Active Substance: ILOPROST
     Dosage: 5 MCG, 6?9 TIMES, QD
     Route: 055
  4. REMODULIN [Concomitant]
     Active Substance: TREPROSTINIL

REACTIONS (6)
  - Asthenia [Unknown]
  - Hypotension [Unknown]
  - Rales [Unknown]
  - Pulmonary arterial hypertension [Unknown]
  - Complication associated with device [Unknown]
  - Skin discolouration [Unknown]
